FAERS Safety Report 8514817-5 (Version None)
Quarter: 2012Q3

REPORT INFORMATION
  Report Type: 
  Country: None (occurrence: None)
  Receive Date: 20120711
  Receipt Date: 20120711
  Transmission Date: 20120928
  Serious: Yes (Hospitalization, Other)
  Sender: FDA-Public Use
  Company Number: None

PATIENT
  Age: 13 Year
  Sex: Male
  Weight: 117.4816 kg

DRUGS (2)
  1. FLOVENT [Suspect]
     Indication: ASTHMA
     Dosage: 1 SPRAY TWICE DAY PO
     Route: 048
     Dates: start: 20110401, end: 20120630
  2. FLUTICASONE PROPIONATE [Suspect]
     Indication: NASAL CONGESTION
     Dosage: 1 SPRAY IN EACH NOSTRIL TWICE DAY NASAL
     Route: 045
     Dates: start: 20110401, end: 20120630

REACTIONS (2)
  - BENIGN INTRACRANIAL HYPERTENSION [None]
  - PAPILLOEDEMA [None]
